FAERS Safety Report 14605118 (Version 1)
Quarter: 2018Q1

REPORT INFORMATION
  Report Type: Spontaneous
  Country: US (occurrence: US)
  Receive Date: 20180306
  Receipt Date: 20180306
  Transmission Date: 20180509
  Serious: No
  Sender: FDA-Public Use
  Company Number: None

PATIENT
  Age: 62 Year
  Sex: Male

DRUGS (1)
  1. HARVONI [Suspect]
     Active Substance: LEDIPASVIR\SOFOSBUVIR
     Route: 048
     Dates: start: 20180210

REACTIONS (6)
  - Headache [None]
  - Asthenia [None]
  - Myalgia [None]
  - Chromaturia [None]
  - Dysuria [None]
  - Fatigue [None]

NARRATIVE: CASE EVENT DATE: 20180306
